FAERS Safety Report 5166689-7 (Version None)
Quarter: 2006Q4

REPORT INFORMATION
  Report Type: 
  Country: None (occurrence: None)
  Receive Date: 20061207
  Receipt Date: 20061101
  Transmission Date: 20070319
  Serious: Yes (Life-Threatening)
  Sender: FDA-Public Use
  Company Number: PHBS2006JP17209

PATIENT
  Age: 51 Year
  Sex: Male

DRUGS (8)
  1. NEORAL [Suspect]
     Indication: HAEMOPHILIA
     Dosage: 300 MG/DAY
     Route: 048
     Dates: start: 20060819
  2. NEORAL [Suspect]
     Dosage: 250 MG/DAY
     Route: 048
  3. NEORAL [Suspect]
     Dosage: 200 MG/DAY
     Route: 048
     Dates: end: 20061111
  4. NEORAL [Suspect]
     Dosage: 100 MG/DAY
     Route: 048
     Dates: start: 20061111
  5. NEORAL [Suspect]
     Dosage: 150 MG/DAY
     Route: 048
  6. PREDNISOLONE [Suspect]
     Indication: HAEMOPHILIA
     Dosage: UNK, UNK
     Route: 048
  7. ANTI-INHIBITOR COAGULANT COMPLEX [Suspect]
     Route: 048
  8. EPTACOG ALFA (ACTIVATED) [Suspect]
     Route: 048

REACTIONS (4)
  - DRUG LEVEL INCREASED [None]
  - GASTROINTESTINAL HAEMORRHAGE [None]
  - HAEMOLYTIC URAEMIC SYNDROME [None]
  - MELAENA [None]
